FAERS Safety Report 7221211-6 (Version None)
Quarter: 2010Q4

REPORT INFORMATION
  Report Type: 
  Country: None (occurrence: None)
  Receive Date: 20101227
  Receipt Date: 20101210
  Transmission Date: 20110411
  Serious: Yes (Hospitalization)
  Sender: FDA-Public Use
  Company Number: US-JNJFOC-20100705700

PATIENT
  Age: 74 Year
  Sex: Male
  Weight: 96 kg

DRUGS (13)
  1. DACOGEN [Suspect]
     Indication: MYELODYSPLASTIC SYNDROME
     Dosage: 20 MG/M2, INTRAVENOUS, 20 MG/M2, INTRAVENOUS, 20 MG/M2, INTRAVENOUS
     Route: 042
     Dates: end: 20100625
  2. DACOGEN [Suspect]
     Indication: MYELODYSPLASTIC SYNDROME
     Dosage: 20 MG/M2, INTRAVENOUS, 20 MG/M2, INTRAVENOUS, 20 MG/M2, INTRAVENOUS
     Route: 042
     Dates: start: 20100222
  3. DACOGEN [Suspect]
     Indication: MYELODYSPLASTIC SYNDROME
     Dosage: 20 MG/M2, INTRAVENOUS, 20 MG/M2, INTRAVENOUS, 20 MG/M2, INTRAVENOUS
     Route: 042
     Dates: start: 20100621
  4. LIPITOR [Concomitant]
  5. LASIX [Concomitant]
  6. POTASSIUM (POTASSIUM) [Concomitant]
  7. GABAPENTIN [Concomitant]
  8. ASPIRIN [Concomitant]
  9. JANUVIA [Concomitant]
  10. METFORMIN HCL [Concomitant]
  11. LISINOPRIL [Concomitant]
  12. VALACYCLOVIR (VALACICLOVIR) [Concomitant]
  13. CEFTIN (CERUOXIME AXETIL) [Concomitant]

REACTIONS (8)
  - ASPERGILLOSIS [None]
  - ASTHENIA [None]
  - CHEILITIS [None]
  - CHILLS [None]
  - FEBRILE NEUTROPENIA [None]
  - HYPOTENSION [None]
  - SKIN LESION [None]
  - THROMBOCYTOPENIA [None]
